FAERS Safety Report 21376303 (Version 1)
Quarter: 2022Q3

REPORT INFORMATION
  Report Type: Spontaneous
  Country: US (occurrence: US)
  Receive Date: 20220926
  Receipt Date: 20220926
  Transmission Date: 20221026
  Serious: Yes (Hospitalization, Other)
  Sender: FDA-Public Use
  Company Number: US-UCBSA-2022056124

PATIENT
  Age: 5 Year
  Sex: Female

DRUGS (1)
  1. VIMPAT [Suspect]
     Active Substance: LACOSAMIDE
     Indication: Cortical dysplasia
     Dosage: UNK

REACTIONS (3)
  - Breast calcifications [Unknown]
  - Seizure [Unknown]
  - Product use in unapproved indication [Unknown]
